FAERS Safety Report 16538966 (Version 2)
Quarter: 2019Q3

REPORT INFORMATION
  Report Type: Spontaneous
  Country: IT (occurrence: IT)
  Receive Date: 20190708
  Receipt Date: 20190724
  Transmission Date: 20191004
  Serious: Yes (Death, Other)
  Sender: FDA-Public Use
  Company Number: IT-AUROBINDO-AUR-APL-2019-038495

PATIENT

DRUGS (4)
  1. RIBAVIRIN AUROBINDO 200MG CAPSULE, HARD [Suspect]
     Active Substance: RIBAVIRIN
     Indication: HEPATIC CIRRHOSIS
     Dosage: 4 DOSAGE FORM, DAILY
     Route: 048
     Dates: start: 20190115, end: 20190409
  2. EPCLUSA [Suspect]
     Active Substance: SOFOSBUVIR\VELPATASVIR
     Indication: HEPATIC CIRRHOSIS
     Dosage: 1 DOSAGE FORM, DAILY
     Route: 048
     Dates: start: 20190115, end: 20190409
  3. AMLODIPINE [Concomitant]
     Active Substance: AMLODIPINE BESYLATE
     Indication: HYPERTENSION
     Dosage: 5 MILLIGRAM
     Route: 048
  4. ZOFENOPRIL DOC GENERICI [Concomitant]
     Indication: CARDIAC DISORDER
     Dosage: 30 MILLIGRAM
     Route: 048

REACTIONS (5)
  - Vertigo [Fatal]
  - Confusional state [Fatal]
  - Ascites [Fatal]
  - Hepatic function abnormal [Fatal]
  - Asthenia [Fatal]

NARRATIVE: CASE EVENT DATE: 20190212
